FAERS Safety Report 7713024-3 (Version None)
Quarter: 2011Q3

REPORT INFORMATION
  Report Type: 
  Country: None (occurrence: None)
  Receive Date: 20110826
  Receipt Date: 20110815
  Transmission Date: 20111222
  Serious: Yes (Congenital Anomaly, Other)
  Sender: FDA-Public Use
  Company Number: BR-BRISTOL-MYERS SQUIBB COMPANY-16003360

PATIENT
  Sex: Male

DRUGS (1)
  1. CYCLOPHOSPHAMIDE [Suspect]
     Dosage: DURATION OF THERAPY:LESS THAN 4 WKS
     Route: 064

REACTIONS (2)
  - CONGENITAL ANOMALY [None]
  - NEOPLASM [None]
